FAERS Safety Report 20772704 (Version 2)
Quarter: 2022Q2

REPORT INFORMATION
  Report Type: Spontaneous
  Country: JP (occurrence: JP)
  Receive Date: 20220502
  Receipt Date: 20220516
  Transmission Date: 20220721
  Serious: Yes (Other)
  Sender: FDA-Public Use
  Company Number: JP-GEHPL-2022JSU002621AA

PATIENT
  Age: 54 Year
  Sex: Female
  Weight: 59 kg

DRUGS (6)
  1. OMNIPAQUE [Suspect]
     Active Substance: IOHEXOL
     Indication: Computerised tomogram
     Dosage: 94ML, SINGLE
     Route: 042
     Dates: start: 20220416, end: 20220416
  2. OMNIPAQUE [Suspect]
     Active Substance: IOHEXOL
     Indication: Hepatic mass
  3. NEUROTROPIN [Suspect]
     Active Substance: NEUROTROPIN
     Indication: Hypoaesthesia
     Dosage: UNK
     Route: 065
     Dates: start: 20220415, end: 20220419
  4. LOXOPROFEN [Suspect]
     Active Substance: LOXOPROFEN
     Indication: Hypoaesthesia
     Dosage: UNK
     Route: 065
     Dates: start: 20220415, end: 20220419
  5. REBAMIPIDE [Suspect]
     Active Substance: REBAMIPIDE
     Indication: Hypoaesthesia
     Dosage: UNK
     Route: 065
     Dates: start: 20220415, end: 20220419
  6. CRESTOR [Concomitant]
     Active Substance: ROSUVASTATIN CALCIUM
     Indication: Diabetes mellitus
     Dosage: UNK
     Dates: start: 2019

REACTIONS (4)
  - Liver function test increased [Recovering/Resolving]
  - Feeling abnormal [Recovering/Resolving]
  - Malaise [Recovering/Resolving]
  - Vomiting [Recovering/Resolving]

NARRATIVE: CASE EVENT DATE: 20220419
